FAERS Safety Report 6316526-X (Version None)
Quarter: 2009Q3

REPORT INFORMATION
  Report Type: 
  Country: None (occurrence: None)
  Receive Date: 20090820
  Receipt Date: 20090807
  Transmission Date: 20100115
  Serious: Yes (Other)
  Sender: FDA-Public Use
  Company Number: US-WATSON-2009-06373

PATIENT
  Sex: Female

DRUGS (4)
  1. NICOTINE POLACRILEX (WATSON LABORATORIES) [Suspect]
     Indication: SMOKING CESSATION THERAPY
     Dosage: 6 PIECES, DAILY (ON AND OFF BETWEEN 2 AND 4MG)
     Route: 002
     Dates: start: 20050101
  2. NICOTINE POLACRILEX (WATSON LABORATORIES) [Suspect]
     Dosage: 6 PIECES, DAILY (ON AND OFF BETWEEN 2 AND 4MG)
     Route: 002
     Dates: start: 20050101
  3. NICOTINE POLACRILEX (WATSON LABORATORIES) [Suspect]
     Dosage: 6 PIECES, DAILY (ON AND OFF BETWEEN 2 AND 4MG)
     Route: 002
     Dates: start: 20050101
  4. NICOTINE POLACRILEX (WATSON LABORATORIES) [Suspect]
     Dosage: 6 PIECES, DAILY (ON AND OFF BETWEEN 2 AND 4MG)
     Route: 002
     Dates: start: 20050101

REACTIONS (3)
  - EPIGLOTTIC CARCINOMA [None]
  - NECK MASS [None]
  - NICOTINE DEPENDENCE [None]
